FAERS Safety Report 23388763 (Version 1)
Quarter: 2024Q1

REPORT INFORMATION
  Report Type: Spontaneous
  Country: US (occurrence: None)
  Receive Date: 20240110
  Receipt Date: 20240110
  Transmission Date: 20240409
  Serious: No
  Sender: FDA-Public Use
  Company Number: None

PATIENT
  Age: 68 Year
  Sex: Male

DRUGS (1)
  1. TEMOZOLOMIDE [Suspect]
     Active Substance: TEMOZOLOMIDE
     Indication: Lung neoplasm malignant
     Route: 048
     Dates: start: 202309

REACTIONS (4)
  - Loss of consciousness [None]
  - Head injury [None]
  - Skin laceration [None]
  - Therapy change [None]

NARRATIVE: CASE EVENT DATE: 20231127
